FAERS Safety Report 17914652 (Version 1)
Quarter: 2020Q2

REPORT INFORMATION
  Report Type: Spontaneous
  Country: DE (occurrence: DE)
  Receive Date: 20200618
  Receipt Date: 20200618
  Transmission Date: 20200714
  Serious: Yes (Other)
  Sender: FDA-Public Use
  Company Number: DE-BAYER-2020-110862

PATIENT
  Age: 15 Year
  Sex: Female

DRUGS (1)
  1. QLAIRA FILMTABLETTEN [Suspect]
     Active Substance: DIENOGEST\ESTRADIOL VALERATE
     Indication: DYSMENORRHOEA
     Dosage: UNK
     Route: 048
     Dates: start: 201906, end: 202005

REACTIONS (4)
  - Nausea [None]
  - Therapeutic response unexpected [None]
  - Jaundice [None]
  - Gilbert^s syndrome [None]

NARRATIVE: CASE EVENT DATE: 20200515
